FAERS Safety Report 10934585 (Version 4)
Quarter: 2015Q3

REPORT INFORMATION
  Report Type: Spontaneous
  Country: JP (occurrence: JP)
  Receive Date: 20150320
  Receipt Date: 20150908
  Transmission Date: 20151125
  Serious: Yes (Other)
  Sender: FDA-Public Use
  Company Number: PHJP2015JP003114

PATIENT
  Age: 60 Year
  Sex: Female

DRUGS (1)
  1. NEORAL [Suspect]
     Active Substance: CYCLOSPORINE
     Indication: APLASTIC ANAEMIA
     Dosage: UNK
     Route: 048

REACTIONS (6)
  - Abdominal pain [Not Recovered/Not Resolved]
  - Erosive duodenitis [Unknown]
  - Inflammation [Unknown]
  - Diarrhoea [Not Recovered/Not Resolved]
  - Small intestine ulcer [Not Recovered/Not Resolved]
  - Off label use [Unknown]

NARRATIVE: CASE EVENT DATE: 20120131
